FAERS Safety Report 18739032 (Version 2)
Quarter: 2021Q1

REPORT INFORMATION
  Report Type: Report from Study
  Country: CO (occurrence: CO)
  Receive Date: 20210114
  Receipt Date: 20210305
  Transmission Date: 20210419
  Serious: Yes (Hospitalization, Other)
  Sender: FDA-Public Use
  Company Number: NVSC2020CO056928

PATIENT
  Sex: Male
  Weight: 52 kg

DRUGS (8)
  1. METHOCARBAMOL. [Concomitant]
     Active Substance: METHOCARBAMOL
     Indication: PRODUCT USED FOR UNKNOWN INDICATION
     Dosage: UNK
     Route: 065
  2. THIAMINE. [Concomitant]
     Active Substance: THIAMINE
     Indication: ARTHRALGIA
     Dosage: UNK
     Route: 065
  3. REVOLADE [Suspect]
     Active Substance: ELTROMBOPAG OLAMINE
     Indication: IMMUNE THROMBOCYTOPENIA
     Dosage: 50 MG, QD
     Route: 048
     Dates: start: 201912
  4. ZOPICLON [Concomitant]
     Active Substance: ZOPICLONE
     Indication: INSOMNIA
     Dosage: UNK, QD
     Route: 065
  5. DOLEX FORTE [Concomitant]
     Active Substance: ACETAMINOPHEN\CAFFEINE
     Indication: MIGRAINE
  6. LEVOTHYROXINE. [Concomitant]
     Active Substance: LEVOTHYROXINE
     Indication: THYROID DISORDER
     Dosage: UNK, QD
     Route: 048
  7. DOLEX FORTE [Concomitant]
     Active Substance: ACETAMINOPHEN\CAFFEINE
     Indication: HEADACHE
     Dosage: UNK, QD
     Route: 048
  8. REVOLADE [Suspect]
     Active Substance: ELTROMBOPAG OLAMINE
     Dosage: 50 MG, QD
     Route: 048

REACTIONS (10)
  - Wound complication [Unknown]
  - Vertigo [Unknown]
  - Discouragement [Unknown]
  - Hypertension [Unknown]
  - Arthralgia [Unknown]
  - Blood triglycerides increased [Unknown]
  - Platelet count decreased [Not Recovered/Not Resolved]
  - Dizziness [Unknown]
  - Angina unstable [Unknown]
  - Memory impairment [Unknown]
